FAERS Safety Report 5468430-7 (Version None)
Quarter: 2007Q3

REPORT INFORMATION
  Report Type: 
  Country: None (occurrence: None)
  Receive Date: 20070926
  Receipt Date: 20070914
  Transmission Date: 20080115
  Serious: Yes (Hospitalization)
  Sender: FDA-Public Use
  Company Number: US-MERCK-0709USA03444

PATIENT
  Age: 67 Year
  Sex: Female

DRUGS (2)
  1. HYDRODIURIL [Suspect]
     Route: 048
     Dates: end: 20031030
  2. ALTACE [Suspect]
     Route: 065
     Dates: end: 20031030

REACTIONS (2)
  - DRUG INTERACTION [None]
  - RENAL FAILURE ACUTE [None]
